FAERS Safety Report 16723887 (Version 1)
Quarter: 2019Q3

REPORT INFORMATION
  Report Type: Report from Study
  Country: US (occurrence: US)
  Receive Date: 20190821
  Receipt Date: 20190821
  Transmission Date: 20191005
  Serious: Yes (Hospitalization)
  Sender: FDA-Public Use
  Company Number: US-GILEAD-2019-0424334

PATIENT
  Age: 39 Year
  Sex: Male

DRUGS (1)
  1. EMTRICITABINE/TENOFOVIR DISOPROXIL FUMARATE [Suspect]
     Active Substance: EMTRICITABINE\TENOFOVIR DISOPROXIL FUMARATE
     Indication: PROPHYLAXIS AGAINST HIV INFECTION
     Dosage: 500 MG, QD
     Route: 048
     Dates: start: 2017

REACTIONS (2)
  - Intentional product use issue [Not Recovered/Not Resolved]
  - Bite [Recovered/Resolved]

NARRATIVE: CASE EVENT DATE: 20190808
